FAERS Safety Report 8486937-5 (Version None)
Quarter: 2012Q3

REPORT INFORMATION
  Report Type: 
  Country: None (occurrence: None)
  Receive Date: 20120704
  Receipt Date: 20120327
  Transmission Date: 20120928
  Serious: No
  Sender: FDA-Public Use
  Company Number: US-BAUSCH-2012BL002184

PATIENT
  Sex: Female

DRUGS (1)
  1. ZIRGAN [Suspect]
     Indication: CONJUNCTIVITIS VIRAL
     Route: 047
     Dates: start: 20120223

REACTIONS (3)
  - CONJUNCTIVITIS [None]
  - EYELID OEDEMA [None]
  - CORNEAL EXFOLIATION [None]
